FAERS Safety Report 4395979-0 (Version None)
Quarter: 2004Q3

REPORT INFORMATION
  Report Type: 
  Country: None (occurrence: None)
  Receive Date: 20040707
  Receipt Date: 20040624
  Transmission Date: 20050211
  Serious: Yes (Hospitalization)
  Sender: FDA-Public Use
  Company Number: 2004221117FR

PATIENT
  Age: 50 Year
  Sex: Female

DRUGS (22)
  1. FARMORURICINA(EPIRUBICIN HYDROCHLORIDE) SOLUTION, STERILE [Suspect]
     Dosage: 150 MG/M2, CYCLIC, IV
     Route: 042
     Dates: start: 20021219, end: 20021219
  2. FARMORURICINA(EPIRUBICIN HYDROCHLORIDE) SOLUTION, STERILE [Suspect]
     Dosage: 150 MG/M2, CYCLIC, IV
     Route: 042
     Dates: start: 20030116, end: 20030116
  3. FARMORURICINA(EPIRUBICIN HYDROCHLORIDE) SOLUTION, STERILE [Suspect]
     Dosage: 150 MG/M2, CYCLIC, IV
     Route: 042
     Dates: start: 20030207, end: 20030207
  4. FARMORURICINA(EPIRUBICIN HYDROCHLORIDE) SOLUTION, STERILE [Suspect]
     Dosage: 150 MG/M2, CYCLIC, IV
     Route: 042
     Dates: start: 20030311, end: 20030311
  5. CYCLOPHOSPHAMIDE [Suspect]
     Dosage: 4000 MG/M2, CYCLIC, IV
     Route: 042
     Dates: start: 20021219, end: 20021219
  6. CYCLOPHOSPHAMIDE [Suspect]
     Dosage: 4000 MG/M2, CYCLIC, IV
     Route: 042
     Dates: start: 20030116, end: 20030116
  7. CYCLOPHOSPHAMIDE [Suspect]
     Dosage: 4000 MG/M2, CYCLIC, IV
     Route: 042
     Dates: start: 20030207, end: 20030207
  8. CYCLOPHOSPHAMIDE [Suspect]
     Dosage: 4000 MG/M2, CYCLIC, IV
     Route: 042
     Dates: start: 20030311, end: 20030311
  9. FLUOROURACIL [Suspect]
     Dosage: 750 MG/M2, IV
     Route: 042
     Dates: start: 20030725, end: 20030729
  10. FLUOROURACIL [Suspect]
     Dosage: 750 MG/M2, IV
     Route: 042
     Dates: start: 20030818, end: 20030818
  11. FLUOROURACIL [Suspect]
     Dosage: 750 MG/M2, IV
     Route: 042
     Dates: start: 20030908, end: 20030912
  12. COPARATOR-DOCETAXEL (DOCETAXEL) [Suspect]
     Dosage: 85 MG/M2, CYCLIC, IV
     Route: 042
     Dates: start: 20030725, end: 20030725
  13. COPARATOR-DOCETAXEL (DOCETAXEL) [Suspect]
     Dosage: 85 MG/M2, CYCLIC, IV
     Route: 042
     Dates: start: 20030818, end: 20030818
  14. COPARATOR-DOCETAXEL (DOCETAXEL) [Suspect]
     Dosage: 85 MG/M2, CYCLIC, IV
     Route: 042
     Dates: start: 20030908, end: 20030908
  15. COMPARATOR-MESNA (MESNA) INJECTION [Suspect]
     Dates: start: 20030116, end: 20030116
  16. COMPARATOR-MESNA (MESNA) INJECTION [Suspect]
     Dates: start: 20030207, end: 20030207
  17. COMPARATOR-MESNA (MESNA) INJECTION [Suspect]
     Dates: start: 20030311, end: 20030311
  18. COMPARATOR-MESNA (MESNA) INJECTION [Suspect]
     Dates: start: 20031219, end: 20031219
  19. SODIUM CHLORIDE INJ [Concomitant]
  20. GLUCOSE [Concomitant]
  21. MEDROL [Concomitant]
  22. ANTHRACYCLINES [Concomitant]

REACTIONS (2)
  - ACUTE MYELOID LEUKAEMIA [None]
  - THROMBOCYTOPENIA [None]
